FAERS Safety Report 15149780 (Version 1)
Quarter: 2018Q3

REPORT INFORMATION
  Report Type: Spontaneous
  Country: US (occurrence: US)
  Receive Date: 20180619
  Receipt Date: 20180619
  Transmission Date: 20181010
  Serious: Yes (Death)
  Sender: FDA-Public Use
  Company Number: None

PATIENT
  Age: 86 Year
  Sex: Male
  Weight: 64.86 kg

DRUGS (12)
  1. HUMOLIN R [Concomitant]
  2. METFORMIN [Concomitant]
     Active Substance: METFORMIN HYDROCHLORIDE
  3. OMEPRAZOLE. [Concomitant]
     Active Substance: OMEPRAZOLE
  4. DOCUSATE [Concomitant]
     Active Substance: DOCUSATE
  5. NYSTATIN. [Concomitant]
     Active Substance: NYSTATIN
  6. CISPLATIN 100MG/100ML MDV [Suspect]
     Active Substance: CISPLATIN
     Indication: DIFFUSE LARGE B-CELL LYMPHOMA
     Dosage: 116 MG IV DAY 1 OR 21 IV
     Route: 042
  7. AMOXICILLIN. [Concomitant]
     Active Substance: AMOXICILLIN
  8. ESCITALOPRAM [Concomitant]
     Active Substance: ESCITALOPRAM OXALATE
  9. GEMCITABINE [Suspect]
     Active Substance: GEMCITABINE\GEMCITABINE HYDROCHLORIDE
     Indication: DIFFUSE LARGE B-CELL LYMPHOMA
     Dosage: 1328 MG DAY 1 AND 8 OF 21 IV
     Route: 042
  10. CENTRUM SILVER [Concomitant]
     Active Substance: MINERALS\VITAMINS
  11. MEGA MULTIVITAMIN [Concomitant]
  12. SULFAMETHOX [Concomitant]

REACTIONS (1)
  - Pneumonia [None]

NARRATIVE: CASE EVENT DATE: 20180617
